FAERS Safety Report 25357451 (Version 1)
Quarter: 2025Q2

REPORT INFORMATION
  Report Type: Spontaneous
  Country: US (occurrence: US)
  Receive Date: 20250526
  Receipt Date: 20250526
  Transmission Date: 20250716
  Serious: No
  Sender: ACCORD
  Company Number: US-Accord-451959

PATIENT
  Sex: Female

DRUGS (7)
  1. METHOTREXATE [Suspect]
     Active Substance: METHOTREXATE
     Indication: Product used for unknown indication
  2. HUMIRA [Concomitant]
     Active Substance: ADALIMUMAB
  3. ENBREL [Concomitant]
     Active Substance: ETANERCEPT
  4. HYDROXYCHLOROQUINE [Concomitant]
     Active Substance: HYDROXYCHLOROQUINE
  5. SIMPONI [Concomitant]
     Active Substance: GOLIMUMAB
  6. TOFACITINIB [Concomitant]
     Active Substance: TOFACITINIB
  7. REMICADE [Concomitant]
     Active Substance: INFLIXIMAB

REACTIONS (1)
  - Treatment failure [Unknown]
